FAERS Safety Report 4794155-7 (Version None)
Quarter: 2005Q4

REPORT INFORMATION
  Report Type: 
  Country: None (occurrence: None)
  Receive Date: 20051011
  Receipt Date: 20050622
  Transmission Date: 20060501
  Serious: Yes (Hospitalization)
  Sender: FDA-Public Use
  Company Number: US-MERCK-0506USA03324

PATIENT
  Age: 58 Year
  Sex: Female
  Weight: 91 kg

DRUGS (8)
  1. VIOXX [Suspect]
     Indication: ARTHRITIS
     Route: 048
     Dates: start: 20000101, end: 20030101
  2. SYNTHROID [Concomitant]
     Indication: HYPOTHYROIDISM
     Route: 065
  3. PROVERA [Concomitant]
     Indication: HORMONE REPLACEMENT THERAPY
     Route: 065
  4. ESTRADIOL [Concomitant]
     Indication: MENOPAUSAL SYMPTOMS
     Route: 065
  5. PHENERGAN [Concomitant]
     Route: 065
  6. MECLIZINE [Concomitant]
     Route: 065
  7. ADVIL [Concomitant]
     Route: 065
  8. TYLENOL (CAPLET) [Concomitant]
     Route: 065

REACTIONS (22)
  - ANTICOAGULATION DRUG LEVEL ABOVE THERAPEUTIC [None]
  - CARPAL TUNNEL SYNDROME [None]
  - CENTRAL PAIN SYNDROME [None]
  - CEREBROVASCULAR ACCIDENT [None]
  - CEREBROVASCULAR DISORDER [None]
  - CONSTIPATION [None]
  - DEPRESSION [None]
  - DIVERTICULUM [None]
  - DYSFUNCTIONAL UTERINE BLEEDING [None]
  - HAEMANGIOMA OF LIVER [None]
  - LUMBAR RADICULOPATHY [None]
  - LUMBAR SPINAL STENOSIS [None]
  - OSTEOARTHRITIS [None]
  - PERIPHERAL VASCULAR DISORDER [None]
  - RECTAL HAEMORRHAGE [None]
  - SINUS CONGESTION [None]
  - SINUSITIS [None]
  - SLEEP DISORDER [None]
  - SPONDYLOLISTHESIS [None]
  - THERMAL BURN [None]
  - UMBILICAL HERNIA [None]
  - UTERINE MASS [None]
